FAERS Safety Report 4412034-1 (Version None)
Quarter: 2004Q3

REPORT INFORMATION
  Report Type: 
  Country: None (occurrence: None)
  Receive Date: 20040727
  Receipt Date: 20040712
  Transmission Date: 20050211
  Serious: No
  Sender: FDA-Public Use
  Company Number: 04H-153-026217-00

PATIENT

DRUGS (3)
  1. LEUCOVORIN CALCIUM [Suspect]
     Indication: CHEMOTHERAPY
     Dosage: 300 MG/M**-2, ONCE, INTRAVENOUS;  DAYS 1,8 + 15 TRT.CYC; DUR:24HR
     Route: 042
  2. GEMCITABINE [Suspect]
     Indication: CHEMOTHERAPY
     Dosage: 800 MG/M**-2, ONCE, INTRAVENOUS
     Route: 042
  3. FLUOROURACIL [Suspect]
     Indication: CHEMOTHERAPY
     Dosage: 2000 MG/M**-2 ONCE, INTRAVENOUS
     Route: 042

REACTIONS (1)
  - INFECTION [None]
